FAERS Safety Report 10385307 (Version 2)
Quarter: 2015Q3

REPORT INFORMATION
  Report Type: Spontaneous
  Country: None (occurrence: None)
  Receive Date: 20140808
  Receipt Date: 20150730
  Transmission Date: 20151125
  Serious: Yes (Other)
  Sender: FDA-Public Use
  Company Number: FR-SEPTODONT-201402114

PATIENT
  Sex: Male

DRUGS (1)
  1. ARTICAINE HYDROCHLORIDE AND EPINEPHRINE [Suspect]
     Active Substance: ARTICAINE HYDROCHLORIDE\EPINEPHRINE BITARTRATE
     Indication: LOCAL ANAESTHESIA
     Dosage: 1DF TOTAL DENTAL
     Route: 004
     Dates: start: 2014

REACTIONS (5)
  - Loss of consciousness [None]
  - Accidental overdose [None]
  - Malaise [None]
  - Fatigue [None]
  - Blood pressure decreased [None]

NARRATIVE: CASE EVENT DATE: 2014
